FAERS Safety Report 7426190-4 (Version None)
Quarter: 2011Q2

REPORT INFORMATION
  Report Type: 
  Country: None (occurrence: None)
  Receive Date: 20110420
  Receipt Date: 20110418
  Transmission Date: 20111010
  Serious: Yes (Life-Threatening, Other)
  Sender: FDA-Public Use
  Company Number: PHHY2011CA24791

PATIENT
  Sex: Female

DRUGS (4)
  1. LEVOTHYROXINE SODIUM [Concomitant]
  2. DOXEPIN [Concomitant]
  3. VITAMIN D [Concomitant]
  4. ACLASTA [Suspect]
     Indication: OSTEOPOROSIS
     Dosage: 5 MG,
     Route: 042
     Dates: start: 20100513

REACTIONS (6)
  - MALAISE [None]
  - EMOTIONAL DISTRESS [None]
  - AMNESIA [None]
  - FEELING ABNORMAL [None]
  - INCOHERENT [None]
  - MANIA [None]
